FAERS Safety Report 4689446-4 (Version None)
Quarter: 2005Q2

REPORT INFORMATION
  Report Type: 
  Country: None (occurrence: None)
  Receive Date: 20050311
  Receipt Date: 20050311
  Transmission Date: 20051028
  Serious: Yes (Life-Threatening)
  Sender: FDA-Public Use
  Company Number: None

PATIENT
  Sex: Female

DRUGS (2)
  1. ATIVAN [Suspect]
     Indication: CONVULSION
     Dosage: 1.25MG TID
  2. ATIVAN [Suspect]
     Indication: ENCEPHALOPATHY
     Dosage: 1.25MG TID

REACTIONS (1)
  - NO ADVERSE EFFECT [None]
